FAERS Safety Report 7329744-9 (Version None)
Quarter: 2011Q1

REPORT INFORMATION
  Report Type: 
  Country: None (occurrence: None)
  Receive Date: 20110303
  Receipt Date: 20110218
  Transmission Date: 20110831
  Serious: Yes (Hospitalization, Other)
  Sender: FDA-Public Use
  Company Number: US-ELI_LILLY_AND_COMPANY-US201008002831

PATIENT
  Sex: Female
  Weight: 44.444 kg

DRUGS (11)
  1. FORTEO [Suspect]
     Indication: OSTEOPOROSIS
     Dosage: 20 UG, DAILY (1/D)
     Route: 058
     Dates: start: 20090301, end: 20101230
  2. FORTEO [Suspect]
     Dosage: 20 UG, DAILY (1/D)
     Route: 058
     Dates: start: 20110105
  3. XANAX [Concomitant]
     Dosage: 0.5 MG, UNK
  4. ARICEPT [Concomitant]
     Dosage: 5 MG, UNK
  5. PAXIL [Concomitant]
     Dosage: 20 MG, UNK
  6. CALCIUM [Concomitant]
  7. PAXIL [Concomitant]
     Dosage: 10 MG, UNK
  8. DIOVAN [Concomitant]
     Dosage: 160 MG, UNK
  9. MAGNESIUM [Concomitant]
  10. ASPIRIN [Concomitant]
     Dosage: 81 MG, UNK
  11. HYDROCHLOROTHIAZIDE [Concomitant]

REACTIONS (2)
  - MYOCARDIAL INFARCTION [None]
  - FALL [None]
